FAERS Safety Report 9436256 (Version 2)
Quarter: 2013Q4

REPORT INFORMATION
  Report Type: Spontaneous
  Country: MY (occurrence: MY)
  Receive Date: 20130802
  Receipt Date: 20131105
  Transmission Date: 20140711
  Serious: Yes (Death, Other)
  Sender: FDA-Public Use
  Company Number: MY-009507513-1305MYS017514

PATIENT
  Age: 89 Year
  Sex: Male

DRUGS (7)
  1. JANUVIA [Suspect]
     Indication: TYPE 2 DIABETES MELLITUS
     Dosage: 25 MG DAILY
     Route: 048
     Dates: start: 20121105, end: 20130513
  2. GLICLAZIDE [Concomitant]
     Indication: TYPE 2 DIABETES MELLITUS
     Dosage: STRENGTH:160/120
     Route: 048
     Dates: end: 20130107
  3. GLICLAZIDE [Concomitant]
     Dosage: STRENGTH:80/80
     Route: 048
     Dates: start: 20130107
  4. LOVASTATIN [Concomitant]
     Dosage: UNK
     Route: 048
  5. FUROSEMIDE [Concomitant]
     Indication: LOCAL SWELLING
     Dosage: UNK
     Route: 048
     Dates: end: 20130218
  6. FUROSEMIDE [Concomitant]
     Indication: LOCAL SWELLING
     Dosage: UNK
     Route: 048
     Dates: start: 20130218, end: 20130513
  7. CARDIPRIN (ASPIRIN (+) GLYCINE) [Concomitant]
     Dosage: UNK
     Route: 048

REACTIONS (3)
  - Renal failure [Fatal]
  - Blood creatinine increased [Recovering/Resolving]
  - Wrong technique in drug usage process [Unknown]
